FAERS Safety Report 7056254-9 (Version None)
Quarter: 2010Q4

REPORT INFORMATION
  Report Type: 
  Country: None (occurrence: None)
  Receive Date: 20101021
  Receipt Date: 20101008
  Transmission Date: 20110411
  Serious: Yes (Congenital Anomaly, Other)
  Sender: FDA-Public Use
  Company Number: NL-ELI_LILLY_AND_COMPANY-NL201008008477

PATIENT

DRUGS (7)
  1. PROZAC [Suspect]
     Route: 064
  2. FOLIC ACID [Concomitant]
     Route: 064
  3. PREGNYL [Concomitant]
  4. PUREGON [Concomitant]
  5. TERRA-CORTRIL [Concomitant]
  6. PROVERA [Concomitant]
  7. HYDROCOBAMINE [Concomitant]

REACTIONS (6)
  - AUTOSOMAL CHROMOSOME ANOMALY [None]
  - DRUG EXPOSURE DURING PREGNANCY [None]
  - ENCEPHALOCELE [None]
  - LOW SET EARS [None]
  - POLYDACTYLY [None]
  - RENAL DYSPLASIA [None]
